FAERS Safety Report 10906794 (Version 1)
Quarter: 2015Q1

REPORT INFORMATION
  Report Type: Spontaneous
  Country: US (occurrence: None)
  Receive Date: 20150309
  Receipt Date: 20150309
  Transmission Date: 20150721
  Serious: Yes (Other)
  Sender: FDA-Public Use
  Company Number: None

PATIENT
  Age: 48 Year
  Sex: Female
  Weight: 53.07 kg

DRUGS (2)
  1. REMICADE [Suspect]
     Active Substance: INFLIXIMAB
     Indication: RHEUMATOID ARTHRITIS
     Dosage: Q8 WEEKS
     Route: 042
     Dates: start: 20150211
  2. PREDNISONE. [Concomitant]
     Active Substance: PREDNISONE

REACTIONS (4)
  - Paraesthesia oral [None]
  - Dyspnoea [None]
  - Nuclear magnetic resonance imaging brain abnormal [None]
  - Infusion related reaction [None]

NARRATIVE: CASE EVENT DATE: 20150213
